FAERS Safety Report 10921760 (Version 3)
Quarter: 2016Q1

REPORT INFORMATION
  Report Type: Spontaneous
  Country: PT (occurrence: PT)
  Receive Date: 20150317
  Receipt Date: 20160126
  Transmission Date: 20160525
  Serious: Yes (Other)
  Sender: FDA-Public Use
  Company Number: PT-ACTAVIS-2015-04879

PATIENT
  Age: 51 Year
  Sex: Female
  Weight: 56 kg

DRUGS (4)
  1. ONDANSETROM                        /00955301/ [Concomitant]
     Indication: ALLERGY PROPHYLAXIS
     Dosage: 8 MG, DAILY - AS PART OF PRE-MEDICATION REGIMEN.
     Route: 042
     Dates: start: 20150216, end: 20150216
  2. DOCETAXEL ACTAVIS [Suspect]
     Active Substance: DOCETAXEL
     Indication: BREAST CANCER
     Dosage: 160 MG/M2, 1/ THREE WEEKS
     Route: 042
     Dates: start: 20150216, end: 20150216
  3. PREDNISOLONA                       /00016201/ [Concomitant]
     Indication: ALLERGY PROPHYLAXIS
     Dosage: 40 MG, DAILY-PREMEDICATION REGIMEN:40 MG ON THE DAY BEFORE TREATMENT+40+40MG ON THE DAY OF TREATMENT
     Route: 048
     Dates: start: 20150215, end: 20150215
  4. DEXAMETASONA                       /00016001/ [Concomitant]
     Indication: ALLERGY PROPHYLAXIS
     Dosage: 20 MG, DAILY - AS PART OF PRE-MEDICATION REGIMEN.
     Route: 042
     Dates: start: 20150216, end: 20150216

REACTIONS (6)
  - Injection site discolouration [Recovering/Resolving]
  - Vision blurred [Recovered/Resolved]
  - Skin exfoliation [Recovered/Resolved]
  - Hyperhidrosis [Recovered/Resolved]
  - Injection site erythema [Recovered/Resolved]
  - Back pain [Recovered/Resolved]

NARRATIVE: CASE EVENT DATE: 20150216
